FAERS Safety Report 4275915-8 (Version None)
Quarter: 2004Q1

REPORT INFORMATION
  Report Type: 
  Country: None (occurrence: None)
  Receive Date: 20040121
  Receipt Date: 20030305
  Transmission Date: 20041129
  Serious: Yes (Hospitalization)
  Sender: FDA-Public Use
  Company Number: US-GLAXOSMITHKLINE-A0399086A

PATIENT
  Age: 81 Year
  Sex: Female

DRUGS (2)
  1. VALTREX [Suspect]
     Route: 048
     Dates: start: 20010101, end: 20010101
  2. MACROBID [Concomitant]

REACTIONS (2)
  - BLOOD PRESSURE INCREASED [None]
  - DELUSION [None]
